FAERS Safety Report 9798522 (Version 1)
Quarter: 2014Q1

REPORT INFORMATION
  Report Type: Spontaneous
  Country: US (occurrence: US)
  Receive Date: 20140106
  Receipt Date: 20140106
  Transmission Date: 20141002
  Serious: No
  Sender: FDA-Public Use
  Company Number: US-BAYER-2014-001572

PATIENT
  Sex: Male
  Weight: 68.03 kg

DRUGS (1)
  1. ALEVE CAPLET [Suspect]
     Indication: MIGRAINE
     Dosage: 1 DF, ONCE
     Route: 048
     Dates: start: 20140101, end: 20140101

REACTIONS (1)
  - Drug ineffective [None]
